FAERS Safety Report 4284498-8 (Version None)
Quarter: 2004Q1

REPORT INFORMATION
  Report Type: 
  Country: None (occurrence: None)
  Receive Date: 20040130
  Receipt Date: 20040109
  Transmission Date: 20041129
  Serious: Yes (Hospitalization, Other)
  Sender: FDA-Public Use
  Company Number: USA031254704

PATIENT
  Sex: Female

DRUGS (22)
  1. HUMALOG [Suspect]
     Indication: DIABETES MELLITUS INSULIN-DEPENDENT
     Dates: start: 19920101
  2. HUMULIN R [Suspect]
     Indication: DIABETES MELLITUS INSULIN-DEPENDENT
     Dates: end: 19920101
  3. HUMULIN N [Suspect]
     Indication: DIABETES MELLITUS INSULIN-DEPENDENT
     Dates: end: 19920101
  4. LANTUS [Concomitant]
  5. PREMARIN [Concomitant]
  6. ACTOS [Concomitant]
  7. FUROSEMIDE [Concomitant]
  8. ZYRTEC [Concomitant]
  9. AMITRIPTYLINE [Concomitant]
  10. SYNTHROID [Concomitant]
  11. PLAVIX [Concomitant]
  12. DIGITEKK(DIGOXIN) [Concomitant]
  13. METOCLOPRAMIDE [Concomitant]
  14. COUMADIN [Concomitant]
  15. LISINOPRIL [Concomitant]
  16. BETAPACE [Concomitant]
  17. PRILOSEC [Concomitant]
  18. ZOCOR [Concomitant]
  19. WELCHOL [Concomitant]
  20. CALCIUM [Concomitant]
  21. VITAMIN C [Concomitant]
  22. IRON SUPPLEMENT [Concomitant]

REACTIONS (8)
  - BLINDNESS UNILATERAL [None]
  - BLOOD GLUCOSE DECREASED [None]
  - CEREBROVASCULAR ACCIDENT [None]
  - DRUG INEFFECTIVE [None]
  - HYPERGLYCAEMIA [None]
  - LEG AMPUTATION [None]
  - PHARMACEUTICAL PRODUCT COMPLAINT [None]
  - SCAR [None]
